FAERS Safety Report 21992029 (Version 2)
Quarter: 2023Q1

REPORT INFORMATION
  Report Type: Report from Study
  Country: CA (occurrence: CA)
  Receive Date: 20230214
  Receipt Date: 20230318
  Transmission Date: 20230417
  Serious: Yes (Hospitalization, Other)
  Sender: FDA-Public Use
  Company Number: CA-ABBVIE-4306685

PATIENT
  Sex: Female
  Weight: 48 kg

DRUGS (16)
  1. RINVOQ [Suspect]
     Active Substance: UPADACITINIB
     Indication: Rheumatoid arthritis
     Dosage: DISCONTINUED IN NOV 2022
     Route: 048
     Dates: start: 20211113, end: 202211
  2. CRESTOR [Concomitant]
     Active Substance: ROSUVASTATIN CALCIUM
     Indication: Product used for unknown indication
  3. LEFLUNOMIDE [Concomitant]
     Active Substance: LEFLUNOMIDE
     Indication: Product used for unknown indication
  4. BISOPROLOL [Suspect]
     Active Substance: BISOPROLOL
     Indication: Product used for unknown indication
     Route: 048
  5. ADVAIR HFA [Concomitant]
     Active Substance: FLUTICASONE PROPIONATE\SALMETEROL XINAFOATE
     Indication: Product used for unknown indication
     Dosage: 250/50 MG
  6. AMIODARONE [Concomitant]
     Active Substance: AMIODARONE
     Indication: Product used for unknown indication
  7. HYDROXYCHLOROQUINE [Concomitant]
     Active Substance: HYDROXYCHLOROQUINE
     Indication: Product used for unknown indication
     Route: 048
  8. RAMIPRIL [Concomitant]
     Active Substance: RAMIPRIL
     Indication: Product used for unknown indication
     Route: 048
  9. VITAMIN D [Concomitant]
     Active Substance: VITAMIN D NOS
     Indication: Product used for unknown indication
  10. Pentaprazole [Concomitant]
     Indication: Product used for unknown indication
  11. WARFARIN [Concomitant]
     Active Substance: WARFARIN
     Indication: Product used for unknown indication
  12. OLUMIANT [Concomitant]
     Active Substance: BARICITINIB
     Indication: Product used for unknown indication
  13. ROSUVASTATIN [Concomitant]
     Active Substance: ROSUVASTATIN
     Indication: Product used for unknown indication
     Route: 048
  14. VITAMIN C [Concomitant]
     Active Substance: ASCORBIC ACID
     Indication: Product used for unknown indication
  15. SPIRIVA RESPIMAT [Concomitant]
     Active Substance: TIOTROPIUM BROMIDE
     Indication: Product used for unknown indication
  16. ASPIRIN [Concomitant]
     Active Substance: ASPIRIN
     Indication: Product used for unknown indication
     Route: 048

REACTIONS (23)
  - Bradycardia [Unknown]
  - Arthropathy [Unknown]
  - Neoplasm malignant [Unknown]
  - Left ventricular dysfunction [Unknown]
  - Vomiting [Unknown]
  - Joint swelling [Unknown]
  - Rales [Unknown]
  - Cardiac disorder [Unknown]
  - Left atrial enlargement [Unknown]
  - Angina pectoris [Unknown]
  - Cardiac disorder [Unknown]
  - Chest pain [Not Recovered/Not Resolved]
  - Arthralgia [Unknown]
  - Synovitis [Unknown]
  - Pulmonary hypertension [Unknown]
  - Underweight [Unknown]
  - Thymoma [Unknown]
  - Hyperhidrosis [Unknown]
  - Arthralgia [Unknown]
  - Palpitations [Unknown]
  - Nausea [Unknown]
  - Dyspepsia [Not Recovered/Not Resolved]
  - Cachexia [Unknown]
